FAERS Safety Report 20319608 (Version 1)
Quarter: 2022Q1

REPORT INFORMATION
  Report Type: Spontaneous
  Country: ES (occurrence: ES)
  Receive Date: 20220110
  Receipt Date: 20220110
  Transmission Date: 20220423
  Serious: Yes (Other)
  Sender: FDA-Public Use
  Company Number: ES-SUN PHARMACEUTICAL INDUSTRIES LTD-2021R1-322718

PATIENT
  Age: 40 Year
  Sex: Female

DRUGS (4)
  1. CARMUSTINE [Suspect]
     Active Substance: CARMUSTINE
     Indication: Primary mediastinal large B-cell lymphoma
     Dosage: 100 MILLIGRAM/SQ. METER, UNK
     Route: 065
  2. METHOTREXATE [Suspect]
     Active Substance: METHOTREXATE
     Indication: Primary mediastinal large B-cell lymphoma
     Dosage: 3000 MILLIGRAM/SQ. METER, UNK
     Route: 065
  3. CYTARABINE [Suspect]
     Active Substance: CYTARABINE
     Indication: Primary mediastinal large B-cell lymphoma
     Dosage: 3000 MILLIGRAM/SQ. METER, UNK
     Route: 065
  4. RITUXIMAB [Suspect]
     Active Substance: RITUXIMAB
     Indication: Primary mediastinal large B-cell lymphoma
     Dosage: 375 MILLIGRAM/SQ. METER, UNK
     Route: 065

REACTIONS (1)
  - Disease progression [Unknown]
